FAERS Safety Report 25111189 (Version 1)
Quarter: 2025Q1

REPORT INFORMATION
  Report Type: Spontaneous
  Country: AU (occurrence: None)
  Receive Date: 20250324
  Receipt Date: 20250324
  Transmission Date: 20250409
  Serious: Yes (Hospitalization)
  Sender: ORION
  Company Number: AU-PFIZER INC-PV202500032677

PATIENT
  Age: 10 Year
  Sex: Female
  Weight: 66.9 kg

DRUGS (12)
  1. METHOTREXATE [Suspect]
     Active Substance: METHOTREXATE
     Indication: Crohn^s disease
     Dates: start: 202012
  2. METHOTREXATE [Suspect]
     Active Substance: METHOTREXATE
     Indication: Anorectal disorder
     Dates: end: 202106
  3. METHOTREXATE [Suspect]
     Active Substance: METHOTREXATE
     Dates: start: 202207
  4. METHOTREXATE [Suspect]
     Active Substance: METHOTREXATE
  5. METHOTREXATE [Suspect]
     Active Substance: METHOTREXATE
     Dates: end: 202503
  6. METHOTREXATE [Suspect]
     Active Substance: METHOTREXATE
  7. FOLATE SODIUM [Concomitant]
     Active Substance: FOLATE SODIUM
     Dosage: 2 TIMES/WEEK, CYCLICAL
     Dates: start: 202207
  8. FOLIC ACID [Concomitant]
     Active Substance: FOLIC ACID
     Dosage: 2 TIMES/WEEK, CYCLICAL
  9. FOLIC ACID [Concomitant]
     Active Substance: FOLIC ACID
     Dosage: TWICE A WEEK ON THURSDAY AND SATURDAY
  10. ONDANSETRON [Concomitant]
     Active Substance: ONDANSETRON
     Indication: Nausea
     Dosage: 4 MG, CYCLIC (EVERY 8 HOURS)
  11. ONDANSETRON [Concomitant]
     Active Substance: ONDANSETRON
     Indication: Vomiting
  12. ZINC [Concomitant]
     Active Substance: ZINC

REACTIONS (8)
  - Diarrhoea infectious [Unknown]
  - Drug ineffective for unapproved indication [Unknown]
  - Product use in unapproved indication [Unknown]
  - Product dose omission issue [Unknown]
  - Inflammatory marker increased [Unknown]
  - Lichenoid keratosis [Unknown]
  - Mouth ulceration [Recovered/Resolved]
  - Psoriasis [Unknown]

NARRATIVE: CASE EVENT DATE: 20201201
